FAERS Safety Report 7772217-X (Version None)
Quarter: 2011Q3

REPORT INFORMATION
  Report Type: 
  Country: None (occurrence: None)
  Receive Date: 20110922
  Receipt Date: 20100825
  Transmission Date: 20111222
  Serious: No
  Sender: FDA-Public Use
  Company Number: US-ASTRAZENECA-2007UW25112

PATIENT
  Age: 39 Year
  Sex: Male
  Weight: 72.1 kg

DRUGS (15)
  1. SEROQUEL [Suspect]
     Dosage: 600-800 MG
     Route: 048
     Dates: start: 20050101, end: 20070101
  2. SEROQUEL [Suspect]
     Indication: ANGER
     Route: 048
     Dates: start: 20040801, end: 20070401
  3. SEROQUEL [Suspect]
     Indication: PARANOIA
     Route: 048
     Dates: start: 20040801, end: 20070401
  4. SEROQUEL [Suspect]
     Dosage: 600-800 MG
     Route: 048
     Dates: start: 20050101, end: 20070101
  5. SEROQUEL [Suspect]
     Dosage: 600-800 MG
     Route: 048
     Dates: start: 20050101, end: 20070101
  6. SEROQUEL [Suspect]
     Dosage: 600-800 MG
     Route: 048
     Dates: start: 20050101, end: 20070101
  7. RISPERDAL [Concomitant]
     Indication: DEPRESSION
     Dates: start: 20000101, end: 20010101
  8. RISPERDAL [Concomitant]
     Indication: ANXIETY
     Dates: start: 20000101, end: 20010101
  9. HALDOL [Concomitant]
     Dates: start: 20000101
  10. RISPERDAL [Concomitant]
     Indication: SCHIZOPHRENIA
     Dates: start: 20000101, end: 20010101
  11. SEROQUEL [Suspect]
     Indication: SCHIZOPHRENIA
     Route: 048
     Dates: start: 20040801, end: 20070401
  12. SEROQUEL [Suspect]
     Indication: DEPRESSION
     Route: 048
     Dates: start: 20040801, end: 20070401
  13. SEROQUEL [Suspect]
     Indication: ANXIETY
     Route: 048
     Dates: start: 20040801, end: 20070401
  14. SEROQUEL [Suspect]
     Dosage: 600-800 MG
     Route: 048
     Dates: start: 20050101, end: 20070101
  15. RISPERDAL [Concomitant]
     Indication: PARANOIA
     Dates: start: 20000101, end: 20010101

REACTIONS (5)
  - HYPERGLYCAEMIA [None]
  - DIABETIC COMPLICATION [None]
  - BLOOD CHOLESTEROL INCREASED [None]
  - HYPERLIPIDAEMIA [None]
  - TYPE 2 DIABETES MELLITUS [None]
